FAERS Safety Report 23914654 (Version 1)
Quarter: 2024Q2

REPORT INFORMATION
  Report Type: Spontaneous
  Country: FR (occurrence: FR)
  Receive Date: 20240529
  Receipt Date: 20240529
  Transmission Date: 20240716
  Serious: Yes (Death, Other)
  Sender: FDA-Public Use
  Company Number: FR-CELLTRION INC.-2024FR012462

PATIENT

DRUGS (3)
  1. RITUXIMAB [Suspect]
     Active Substance: RITUXIMAB
     Indication: Follicular lymphoma
     Dosage: 1 DF EVERY 2 MONTHS
     Route: 042
     Dates: start: 20190527
  2. COMIRNATY (TOZINAMERAN) [Suspect]
     Active Substance: TOZINAMERAN
     Indication: COVID-19 immunisation
     Dosage: D1+D2, 2 TOTAL
     Route: 030
     Dates: start: 20210417, end: 20210510
  3. COMIRNATY (TOZINAMERAN) [Suspect]
     Active Substance: TOZINAMERAN
     Dosage: D1+D2, 2 TOTAL
     Route: 030
     Dates: start: 20210417, end: 20210510

REACTIONS (2)
  - Vaccination failure [Fatal]
  - Septic shock [Fatal]

NARRATIVE: CASE EVENT DATE: 20211104
